FAERS Safety Report 21053655 (Version 1)
Quarter: 2022Q3

REPORT INFORMATION
  Report Type: Report from Study
  Country: TW (occurrence: TW)
  Receive Date: 20220707
  Receipt Date: 20220707
  Transmission Date: 20221027
  Serious: Yes (Other)
  Sender: FDA-Public Use
  Company Number: TW-PFIZER INC-2020030737

PATIENT
  Age: 24 Year
  Sex: Male
  Weight: 82.7 kg

DRUGS (2)
  1. ABROCITINIB [Suspect]
     Active Substance: ABROCITINIB
     Indication: Dermatitis atopic
     Dosage: 200 MG, DAILY
     Route: 048
     Dates: start: 20191024, end: 20200116
  2. FLUOCINOLONE ACETONIDE/NEOMYCIN [Concomitant]
     Indication: Dermatitis atopic
     Dosage: [FLUOCINOLONE ACETONIDE 0.025%]/ [NEOMYCIN 0.35%], 5GM /OINT, 2 TIMES A DAY
     Route: 061
     Dates: start: 20200115

REACTIONS (2)
  - Aspartate aminotransferase increased [Recovered/Resolved with Sequelae]
  - Alanine aminotransferase increased [Recovered/Resolved with Sequelae]

NARRATIVE: CASE EVENT DATE: 20200115
